FAERS Safety Report 5759095-5 (Version None)
Quarter: 2008Q2

REPORT INFORMATION
  Report Type: 
  Country: None (occurrence: None)
  Receive Date: 20080604
  Receipt Date: 20080527
  Transmission Date: 20081010
  Serious: Yes (Hospitalization)
  Sender: FDA-Public Use
  Company Number: US-ELI_LILLY_AND_COMPANY-US200803006126

PATIENT
  Sex: Female
  Weight: 85.714 kg

DRUGS (27)
  1. CYMBALTA [Suspect]
     Indication: DEPRESSION
     Dosage: 60 MG, DAILY (1/D)
     Dates: start: 20070101, end: 20080101
  2. CYMBALTA [Suspect]
     Dosage: 30 MG, UNK
     Dates: start: 20080101, end: 20080211
  3. BYETTA [Concomitant]
     Indication: TYPE 2 DIABETES MELLITUS
     Dosage: 5 UG, 2/D
     Dates: start: 20070101, end: 20080101
  4. AMARYL [Concomitant]
     Indication: TYPE 2 DIABETES MELLITUS
     Dosage: 1 MG, DAILY (1/D)
     Dates: start: 20070101
  5. LANTUS [Concomitant]
     Indication: TYPE 2 DIABETES MELLITUS
     Dosage: 12 U, DAILY (1/D)
  6. NEXIUM [Concomitant]
     Indication: GASTROOESOPHAGEAL REFLUX DISEASE
     Dosage: 40 MG, 2/D
  7. DIOVAN [Concomitant]
     Indication: HYPERTENSION
     Dosage: 80 MG, DAILY (1/D)
     Dates: start: 20030101
  8. TOPAMAX [Concomitant]
     Indication: MIGRAINE
     Dosage: 100 MG, 2/D
  9. NEURONTIN [Concomitant]
     Indication: MIGRAINE
     Dosage: 1200 MG, 2/D
  10. LEVBID [Concomitant]
     Indication: IRRITABLE BOWEL SYNDROME
     Dosage: 0.375 MG, 2/D
  11. LIBRAX [Concomitant]
     Indication: IRRITABLE BOWEL SYNDROME
     Dosage: 1 D/F, 2/D
  12. EFFEXOR XR [Concomitant]
     Indication: DEPRESSION
     Dosage: 180 MG, UNK
  13. EFFEXOR XR [Concomitant]
     Dosage: 75 MG, DAILY (1/D)
  14. FOSAMAX [Concomitant]
     Indication: OSTEOPENIA
     Dosage: 70 MG, WEEKLY (1/W)
  15. ASPIRIN [Concomitant]
     Indication: PROPHYLAXIS
     Dosage: 81 MG, DAILY (1/D)
  16. OXYCONTIN [Concomitant]
     Indication: MIGRAINE
     Dosage: 10 MG, AS NEEDED
  17. MORPHINE [Concomitant]
     Indication: LUMBAR SPINAL STENOSIS
     Dosage: 15 MG, AS NEEDED
  18. DILAUDID [Concomitant]
     Indication: PAIN
     Dosage: 2 MG, AS NEEDED
  19. SKELAXIN [Concomitant]
     Indication: MUSCLE SPASMS
     Dosage: 800 MG, AS NEEDED
  20. PHENERGAN [Concomitant]
     Indication: NAUSEA
     Dosage: 50 MG, AS NEEDED
  21. HYDROXYZINE [Concomitant]
     Indication: PRURITUS
     Dosage: 50 MG, AS NEEDED
  22. BENADRYL [Concomitant]
     Indication: PRURITUS
     Dosage: 50 MG, AS NEEDED
  23. FLEXERIL [Concomitant]
     Indication: MUSCLE SPASMS
     Dosage: 10 MG, AS NEEDED
  24. LUNESTA [Concomitant]
     Indication: SLEEP DISORDER
     Dosage: 3 MG, AS NEEDED
  25. COMBIVENT [Concomitant]
     Indication: ASTHMA
     Dosage: 2 D/F, 4/D
  26. ADVAIR DISKUS 100/50 [Concomitant]
     Indication: ASTHMA
     Dosage: UNK, 2/D
  27. OXYGEN [Concomitant]
     Indication: SLEEP APNOEA SYNDROME
     Dosage: 4 LITER, EACH EVENING
     Dates: start: 20030101

REACTIONS (6)
  - BILE DUCT STENOSIS [None]
  - CHRONIC HEPATITIS [None]
  - HEPATIC CIRRHOSIS [None]
  - HEPATIC STEATOSIS [None]
  - PANCREATIC DUCT STENOSIS [None]
  - SPHINCTER OF ODDI DYSFUNCTION [None]
